FAERS Safety Report 4332459-2 (Version None)
Quarter: 2004Q2

REPORT INFORMATION
  Report Type: 
  Country: None (occurrence: None)
  Receive Date: 20040401
  Receipt Date: 20040325
  Transmission Date: 20050107
  Serious: Yes (Hospitalization, Other)
  Sender: FDA-Public Use
  Company Number: FRWYE518020JAN04

PATIENT
  Age: 43 Year
  Sex: Male

DRUGS (4)
  1. CYCLOSPORINE [Suspect]
     Indication: PROPHYLAXIS AGAINST TRANSPLANT REJECTION
     Dosage: 320 MG AT EVENT ONSET; 280 MG DAILY
     Route: 048
     Dates: start: 20030320, end: 20040106
  2. CYCLOSPORINE [Suspect]
     Indication: PROPHYLAXIS AGAINST TRANSPLANT REJECTION
     Dosage: 320 MG AT EVENT ONSET; 280 MG DAILY
     Route: 048
     Dates: start: 20040107
  3. CELLCEPT [Concomitant]
  4. RAMIPRIL [Suspect]
     Route: 048

REACTIONS (4)
  - GASTROENTERITIS VIRAL [None]
  - NEUTROPENIA [None]
  - TUBULOINTERSTITIAL NEPHRITIS [None]
  - WHITE BLOOD CELL COUNT DECREASED [None]
